FAERS Safety Report 7067228-6 (Version None)
Quarter: 2010Q4

REPORT INFORMATION
  Report Type: 
  Country: None (occurrence: None)
  Receive Date: 20101028
  Receipt Date: 20101019
  Transmission Date: 20110411
  Serious: No
  Sender: FDA-Public Use
  Company Number: US-BIOGENIDEC-2010BI036066

PATIENT
  Sex: Female

DRUGS (1)
  1. AVONEX [Suspect]
     Indication: MULTIPLE SCLEROSIS
     Route: 030
     Dates: start: 20090914

REACTIONS (13)
  - BLADDER PAIN [None]
  - BONE PAIN [None]
  - CONTUSION [None]
  - DYSURIA [None]
  - FATIGUE [None]
  - FEELING HOT [None]
  - GASTROENTERITIS VIRAL [None]
  - INJECTION SITE HAEMORRHAGE [None]
  - LOWER EXTREMITY MASS [None]
  - MICTURITION URGENCY [None]
  - NAUSEA [None]
  - PAIN [None]
  - POLLAKIURIA [None]
